FAERS Safety Report 7292666-6 (Version None)
Quarter: 2011Q1

REPORT INFORMATION
  Report Type: 
  Country: None (occurrence: None)
  Receive Date: 20110215
  Receipt Date: 20110203
  Transmission Date: 20110831
  Serious: Yes (Hospitalization)
  Sender: FDA-Public Use
  Company Number: IT-SANOFI-AVENTIS-2011SA006922

PATIENT
  Sex: Male

DRUGS (3)
  1. RAMIPRIL [Suspect]
     Route: 065
  2. FUROSEMIDE [Suspect]
     Route: 065
  3. CARVEDILOL [Suspect]
     Route: 065

REACTIONS (1)
  - SYNCOPE [None]
